FAERS Safety Report 6545743-9 (Version None)
Quarter: 2010Q1

REPORT INFORMATION
  Report Type: 
  Country: None (occurrence: None)
  Receive Date: 20100121
  Receipt Date: 20100111
  Transmission Date: 20100710
  Serious: Yes (Death)
  Sender: FDA-Public Use
  Company Number: TW-BAXTER-2009BH018563

PATIENT
  Sex: Female

DRUGS (16)
  1. DIANEAL [Suspect]
     Indication: PERITONEAL DIALYSIS
     Route: 033
     Dates: start: 20091101
  2. DIANEAL [Suspect]
     Route: 033
     Dates: start: 20091101
  3. DIANEAL [Suspect]
     Route: 033
     Dates: start: 20091101
  4. DIANEAL [Suspect]
     Route: 033
     Dates: start: 20091101
  5. DIANEAL [Suspect]
     Route: 033
     Dates: start: 20091101
  6. DIANEAL [Suspect]
     Route: 033
     Dates: start: 20091101
  7. DIANEAL [Suspect]
     Route: 033
     Dates: start: 20091001, end: 20091101
  8. DIANEAL [Suspect]
     Route: 033
     Dates: start: 20091001, end: 20091101
  9. EXTRANEAL [Suspect]
     Indication: PERITONEAL DIALYSIS
     Route: 033
     Dates: start: 20091101
  10. EXTRANEAL [Suspect]
     Route: 033
     Dates: start: 20091101
  11. EXTRANEAL [Suspect]
     Route: 033
     Dates: start: 20091001, end: 20091101
  12. EXTRANEAL [Suspect]
     Route: 033
     Dates: start: 20091001, end: 20091101
  13. NUTRINEAL [Suspect]
     Indication: PERITONEAL DIALYSIS
     Route: 033
     Dates: start: 20091001
  14. NUTRINEAL [Suspect]
     Route: 033
     Dates: start: 20091001
  15. NUTRINEAL [Suspect]
     Route: 033
     Dates: start: 20091001, end: 20091101
  16. NUTRINEAL [Suspect]
     Route: 033
     Dates: start: 20091001, end: 20091101

REACTIONS (1)
  - CEREBROVASCULAR ACCIDENT [None]
